FAERS Safety Report 25744268 (Version 3)
Quarter: 2025Q3

REPORT INFORMATION
  Report Type: Report from Study
  Country: CA (occurrence: CA)
  Receive Date: 20250901
  Receipt Date: 20250917
  Transmission Date: 20251020
  Serious: Yes (Other)
  Sender: Alvotech
  Company Number: CA-JAMP PHARMA CORPORATION-2025-JAM-CA-01429

PATIENT
  Age: 38 Year
  Sex: Male

DRUGS (7)
  1. SIMLANDI [Suspect]
     Active Substance: ADALIMUMAB-RYVK
     Indication: Crohn^s disease
     Dosage: 40 MG, EVERY WEEK
     Route: 065
  2. IMATINIB [Concomitant]
     Active Substance: IMATINIB
     Indication: Chronic leukaemia
     Route: 048
     Dates: start: 202410
  3. VYVANSE [Concomitant]
     Active Substance: LISDEXAMFETAMINE DIMESYLATE
     Indication: Disturbance in attention
     Route: 048
     Dates: start: 202201
  4. SIMLANDI [Suspect]
     Active Substance: ADALIMUMAB-RYVK
     Indication: Crohn^s disease
     Route: 065
     Dates: start: 2023
  5. SIMLANDI [Suspect]
     Active Substance: ADALIMUMAB-RYVK
     Indication: Crohn^s disease
     Dosage: 40 MG, EVERY 2 WEEKS
     Route: 058
  6. SIMLANDI [Suspect]
     Active Substance: ADALIMUMAB-RYVK
     Indication: Crohn^s disease
     Dosage: 40 MG, EVERY WEEK
     Route: 065
  7. SIMLANDI [Suspect]
     Active Substance: ADALIMUMAB-RYVK
     Indication: Crohn^s disease
     Route: 065

REACTIONS (2)
  - Large intestinal ulcer [Unknown]
  - Drug level decreased [Unknown]

NARRATIVE: CASE EVENT DATE: 20250801
